FAERS Safety Report 8401736-8 (Version None)
Quarter: 2012Q2

REPORT INFORMATION
  Report Type: 
  Country: None (occurrence: None)
  Receive Date: 20120601
  Receipt Date: 20120524
  Transmission Date: 20120825
  Serious: Yes (Other)
  Sender: FDA-Public Use
  Company Number: CA-JNJFOC-20120519083

PATIENT
  Sex: Female
  Weight: 72.12 kg

DRUGS (2)
  1. ANTIDEPRESSANTS [Concomitant]
  2. STELARA [Suspect]
     Indication: PSORIASIS

REACTIONS (1)
  - FIBROMYALGIA [None]
